FAERS Safety Report 19727468 (Version 4)
Quarter: 2022Q1

REPORT INFORMATION
  Report Type: Spontaneous
  Country: US (occurrence: US)
  Receive Date: 20210820
  Receipt Date: 20220201
  Transmission Date: 20220423
  Serious: No
  Sender: FDA-Public Use
  Company Number: US-BIOVITRUM-2021US7481

PATIENT
  Sex: Female

DRUGS (3)
  1. DOPTELET [Suspect]
     Active Substance: AVATROMBOPAG MALEATE
     Indication: Immune thrombocytopenia
     Route: 048
     Dates: start: 20200516
  2. OMEPRAZOLE [Concomitant]
     Active Substance: OMEPRAZOLE
  3. VITAMINS [Concomitant]
     Active Substance: VITAMINS

REACTIONS (15)
  - Hot flush [Unknown]
  - Cough [Unknown]
  - Heart rate increased [Unknown]
  - Swelling [Unknown]
  - Fungal infection [Unknown]
  - Quality of life decreased [Unknown]
  - Foot deformity [Unknown]
  - Nail discolouration [Unknown]
  - Peripheral swelling [Unknown]
  - Platelet count decreased [Unknown]
  - Chest discomfort [Unknown]
  - Pain in extremity [Unknown]
  - Arthralgia [Unknown]
  - Fatigue [Unknown]
  - Rash [Unknown]
